FAERS Safety Report 9319134 (Version 1)
Quarter: 2013Q2

REPORT INFORMATION
  Report Type: Spontaneous
  Country: US (occurrence: US)
  Receive Date: 20130530
  Receipt Date: 20130530
  Transmission Date: 20140414
  Serious: No
  Sender: FDA-Public Use
  Company Number: US-NOVEN-13US006018

PATIENT
  Age: 7 Year
  Sex: Male
  Weight: 29.03 kg

DRUGS (3)
  1. DAYTRANA [Suspect]
     Indication: ATTENTION DEFICIT/HYPERACTIVITY DISORDER
     Dosage: 20 MG, QD
     Route: 062
     Dates: start: 201211
  2. DAYTRANA [Suspect]
     Dosage: 20 MG, QD
     Route: 061
     Dates: start: 201301
  3. DAYTRANA [Suspect]
     Dosage: 20 MG, QD
     Route: 062
     Dates: start: 201301

REACTIONS (5)
  - Disturbance in social behaviour [Not Recovered/Not Resolved]
  - Decreased appetite [Recovered/Resolved]
  - Weight decreased [Not Recovered/Not Resolved]
  - Incorrect drug administration duration [Not Recovered/Not Resolved]
  - Product quality issue [Not Recovered/Not Resolved]
